FAERS Safety Report 16759733 (Version 1)
Quarter: 2019Q3

REPORT INFORMATION
  Report Type: Spontaneous
  Country: US (occurrence: US)
  Receive Date: 20190830
  Receipt Date: 20190830
  Transmission Date: 20191005
  Serious: Yes (Hospitalization, Other)
  Sender: FDA-Public Use
  Company Number: US-HORIZON-KRY-0620-2019

PATIENT
  Sex: Male

DRUGS (2)
  1. METHOTREXATE. [Concomitant]
     Active Substance: METHOTREXATE
  2. KRYSTEXXA [Suspect]
     Active Substance: PEGLOTICASE
     Indication: GOUT
     Dosage: EVERY 2 WEEKS
     Dates: start: 20190820

REACTIONS (8)
  - Feeling abnormal [Unknown]
  - Hypoaesthesia [Unknown]
  - Facial paralysis [Unknown]
  - Fatigue [Unknown]
  - Somnolence [Unknown]
  - Viral infection [Unknown]
  - Dizziness [Unknown]
  - Eye swelling [Unknown]

NARRATIVE: CASE EVENT DATE: 20190825
